FAERS Safety Report 8844720 (Version 1)
Quarter: 2012Q4

REPORT INFORMATION
  Report Type: 
  Country: US (occurrence: None)
  Receive Date: 20121015
  Receipt Date: 20121015
  Transmission Date: 20130627
  Serious: No
  Sender: FDA-Public Use
  Company Number: AEUSA201100190

PATIENT
  Age: 39 Year
  Sex: Male
  Weight: 102.06 kg

DRUGS (5)
  1. HYPERRAB S/D [Suspect]
     Indication: ANIMAL BITE
     Route: 030
     Dates: start: 20110715, end: 20110719
  2. RABIES VACCINE [Suspect]
     Indication: ANIMAL BITE
     Route: 030
     Dates: start: 20110715
  3. METFORMIN [Concomitant]
  4. GLUCOTROL [Concomitant]
  5. TRICOR [Concomitant]

REACTIONS (6)
  - Presyncope [None]
  - Dizziness [None]
  - Flushing [None]
  - Syncope [None]
  - Hyperhidrosis [None]
  - Injection site pain [None]
